FAERS Safety Report 6172531-8 (Version None)
Quarter: 2009Q2

REPORT INFORMATION
  Report Type: 
  Country: None (occurrence: None)
  Receive Date: 20090427
  Receipt Date: 20090413
  Transmission Date: 20091009
  Serious: Yes (Hospitalization)
  Sender: FDA-Public Use
  Company Number: 2009AL002136

PATIENT
  Age: 7 Year
  Sex: Female

DRUGS (4)
  1. FEVERALL [Suspect]
     Indication: PYREXIA
     Dosage: 75 MG/KG; QD
  2. VALPROIC ACID [Concomitant]
  3. CLOBAZAM [Concomitant]
  4. STIRIPENTOL [Concomitant]

REACTIONS (9)
  - ACTIVATED PARTIAL THROMBOPLASTIN TIME PROLONGED [None]
  - AMMONIA INCREASED [None]
  - BLOOD ALBUMIN DECREASED [None]
  - BLOOD CREATINE PHOSPHOKINASE INCREASED [None]
  - CARNITINE DEFICIENCY [None]
  - COAGULATION TEST ABNORMAL [None]
  - DRUG TOXICITY [None]
  - LIVER INJURY [None]
  - PROTHROMBIN TIME PROLONGED [None]
